FAERS Safety Report 8640637 (Version 3)
Quarter: 2012Q4

REPORT INFORMATION
  Report Type: 
  Country: GB (occurrence: GB)
  Receive Date: 20120628
  Receipt Date: 20120926
  Transmission Date: 20130627
  Serious: Yes (Death, Other)
  Sender: FDA-Public Use
  Company Number: PHFR2012GB003712

PATIENT
  Age: 65 Year
  Sex: Male

DRUGS (7)
  1. CLOZARIL [Suspect]
     Indication: SCHIZOPHRENIA
     Dosage: 100 mg, daily
     Route: 048
     Dates: start: 20000303
  2. AMISULPRIDE [Concomitant]
     Indication: SCHIZOPHRENIA
     Dosage: 500 mg, BID
     Route: 048
  3. VALPROATE SODIUM [Concomitant]
     Indication: SCHIZOPHRENIA
     Dosage: 1 g, daily
     Route: 048
  4. ASPIRIN [Concomitant]
  5. ISOSORBIDE [Concomitant]
  6. RAMIPRIL [Concomitant]
  7. SIMVASTATIN [Concomitant]

REACTIONS (2)
  - Bronchopneumonia [Fatal]
  - Dementia Alzheimer^s type [Unknown]
